FAERS Safety Report 9694296 (Version 2)
Quarter: 2013Q4

REPORT INFORMATION
  Report Type: Spontaneous
  Country: US (occurrence: US)
  Receive Date: 20131118
  Receipt Date: 20131118
  Transmission Date: 20140711
  Serious: Yes (Disabling)
  Sender: FDA-Public Use
  Company Number: US-GILEAD-2007-0013025

PATIENT
  Age: 41 Year
  Sex: Female
  Weight: 62.01 kg

DRUGS (13)
  1. LETAIRIS [Suspect]
     Indication: PULMONARY HYPERTENSION
     Route: 048
     Dates: start: 20070711, end: 20070726
  2. COUMADIN [Concomitant]
     Indication: ANTICOAGULANT THERAPY
     Dosage: 4MG MWFSA, 5MG SUTTH
     Dates: start: 20060302
  3. LANOXIN [Concomitant]
     Indication: CARDIAC FAILURE
     Dates: start: 20050616
  4. REMODULIN [Concomitant]
     Dates: start: 20060621
  5. REVATIO [Concomitant]
     Indication: PULMONARY HYPERTENSION
     Dates: start: 20060302
  6. COZAAR [Concomitant]
     Indication: HYPERTENSION
     Dates: start: 20060112
  7. ISOPTIN [Concomitant]
     Indication: HYPERTENSION
     Dates: start: 20050616
  8. MAXZIDE [Concomitant]
     Indication: HYPERTENSION
     Dates: start: 20050616
  9. LESCOL [Concomitant]
     Indication: BLOOD CHOLESTEROL
     Dates: start: 20050616
  10. PHENERGAN [Concomitant]
     Indication: NAUSEA
     Dates: start: 20060621
  11. PLAQUENIL [Concomitant]
     Indication: SYSTEMIC LUPUS ERYTHEMATOSUS
     Dates: start: 20060731
  12. PREDNISONE [Concomitant]
     Indication: SYSTEMIC LUPUS ERYTHEMATOSUS
     Dates: start: 20050616
  13. MULTIVITAMIN [Concomitant]
     Dates: start: 20050616

REACTIONS (2)
  - Eye swelling [Not Recovered/Not Resolved]
  - Oedema peripheral [Not Recovered/Not Resolved]
